FAERS Safety Report 22164968 (Version 1)
Quarter: 2023Q2

REPORT INFORMATION
  Report Type: Spontaneous
  Country: US (occurrence: US)
  Receive Date: 20230403
  Receipt Date: 20230403
  Transmission Date: 20230721
  Serious: Yes (Life-Threatening, Hospitalization)
  Sender: FDA-Public Use
  Company Number: US-HETERO-HET2023US00727

PATIENT
  Age: 68 Year
  Sex: Female

DRUGS (2)
  1. NAPROXEN [Suspect]
     Active Substance: NAPROXEN
     Indication: Pain
     Dosage: UNK
     Route: 065
  2. DOXYCYCLINE 3DDD [Concomitant]
     Indication: Sinusitis
     Dosage: UNK
     Route: 065

REACTIONS (1)
  - Evans syndrome [Recovering/Resolving]
